FAERS Safety Report 22712539 (Version 10)
Quarter: 2024Q1

REPORT INFORMATION
  Report Type: Report from Study
  Country: CO (occurrence: CO)
  Receive Date: 20230717
  Receipt Date: 20240306
  Transmission Date: 20240410
  Serious: Yes (Other)
  Sender: FDA-Public Use
  Company Number: CO-IPSEN Group, Research and Development-2023-16993

PATIENT
  Age: 42 Year
  Sex: Female
  Weight: 58 kg

DRUGS (14)
  1. CABOMETYX [Suspect]
     Active Substance: CABOZANTINIB S-MALATE
     Indication: Renal cell carcinoma
     Dosage: 60 MG, QD (1 TABLET EVERY 24 HOURS)
     Route: 048
     Dates: start: 20230602
  2. CABOMETYX [Suspect]
     Active Substance: CABOZANTINIB S-MALATE
     Dosage: 40 MG, QD (1 TABLET EVERY 24 HOURS)
     Route: 048
     Dates: start: 20230825, end: 20230904
  3. CABOMETYX [Suspect]
     Active Substance: CABOZANTINIB S-MALATE
     Dosage: 40 MG, QD (1 TABLET EVERY 24 HOURS)
     Route: 048
     Dates: end: 20231115
  4. NIVOLUMAB [Suspect]
     Active Substance: NIVOLUMAB
     Indication: Renal cell carcinoma
     Dosage: 480 MG, QD
     Route: 042
     Dates: start: 20230628
  5. NIVOLUMAB [Suspect]
     Active Substance: NIVOLUMAB
     Dosage: 174 MG/ML FOR 30 DAYS
     Route: 042
     Dates: start: 20230727, end: 202401
  6. ATORVASTATIN [Concomitant]
     Active Substance: ATORVASTATIN
     Indication: Blood triglycerides
     Dosage: 40 MG, QD (1 TABLET EVERY 1 DAY)
     Route: 048
     Dates: start: 20191201
  7. INSULIN GLULISINE [Concomitant]
     Active Substance: INSULIN GLULISINE
     Indication: Diabetes mellitus
     Dosage: 100 [IU] (100 [IU] (8 UI BEFORE BREAKFAST 4 UI BEFORE DINNER))
     Route: 058
     Dates: start: 20030201
  8. LINAGLIPTIN [Concomitant]
     Active Substance: LINAGLIPTIN
     Indication: Diabetes mellitus
     Dosage: 2.5 MG, QD (1 TABLET EVERY 24 HOURS)
     Route: 058
     Dates: start: 20230201
  9. PREDNISOLONE [Concomitant]
     Active Substance: PREDNISOLONE
     Indication: Product used for unknown indication
     Dosage: 25 MG, QD (1 TABLET EVERY 24 HOURS)
     Route: 048
  10. HYDROCHLOROTHIAZIDE\LOSARTAN [Concomitant]
     Active Substance: HYDROCHLOROTHIAZIDE\LOSARTAN
     Indication: Hypertension
     Dosage: 50 MG, Q6HR (1 TABLET EVERY 12 HOURS)
     Route: 048
     Dates: start: 20191201
  11. APIDRA [Concomitant]
     Active Substance: INSULIN GLULISINE
     Indication: Diabetes mellitus
     Dosage: 100 [IU] (3 IU BEFORE BREAKFAST, 3 IU BEFORE LUNCH, 2 IU BEFORE DINNER)
     Route: 058
     Dates: start: 201702
  12. IRBESARTAN [Concomitant]
     Active Substance: IRBESARTAN
     Indication: Hypertension
     Dosage: 300 MG, QD (1 TABLET EVERY 12 HOURS)
     Route: 048
     Dates: start: 202310
  13. LANTUS [Concomitant]
     Active Substance: INSULIN GLARGINE
     Indication: Diabetes mellitus
     Dosage: 100 [IU]
     Route: 042
     Dates: start: 202002
  14. LINAGLIPTIN [Concomitant]
     Active Substance: LINAGLIPTIN
     Indication: Diabetes mellitus
     Dosage: 2.5 MG, QD (1 IN EVERY 24 HOURS)
     Route: 058
     Dates: start: 20230628

REACTIONS (17)
  - Condition aggravated [Not Recovered/Not Resolved]
  - Hyperthyroidism [Not Recovered/Not Resolved]
  - Hypoglycaemia [Not Recovered/Not Resolved]
  - Hypoglycaemia [Not Recovered/Not Resolved]
  - Nail bed bleeding [Not Recovered/Not Resolved]
  - Hyperglycaemia [Not Recovered/Not Resolved]
  - Malignant neoplasm progression [Not Recovered/Not Resolved]
  - Diarrhoea [Not Recovered/Not Resolved]
  - Pain in extremity [Not Recovered/Not Resolved]
  - Arthralgia [Not Recovered/Not Resolved]
  - Blood pressure increased [Not Recovered/Not Resolved]
  - Product dose omission issue [Unknown]
  - Medication error [Unknown]
  - Therapy interrupted [Unknown]
  - Product supply issue [Unknown]
  - Transaminases abnormal [Recovered/Resolved]
  - Off label use [Unknown]

NARRATIVE: CASE EVENT DATE: 20230602
